FAERS Safety Report 15963214 (Version 1)
Quarter: 2019Q1

REPORT INFORMATION
  Report Type: Spontaneous
  Country: NL (occurrence: NL)
  Receive Date: 20190214
  Receipt Date: 20190214
  Transmission Date: 20190417
  Serious: Yes (Other)
  Sender: FDA-Public Use
  Company Number: NL-MYLANLABS-2019M1012651

PATIENT

DRUGS (5)
  1. HUMAN CHORIONIC GONADOTROPIN [Suspect]
     Active Substance: GONADOTROPHIN, CHORIONIC
     Indication: PRODUCT USED FOR UNKNOWN INDICATION
     Dosage: UNK
  2. TRENBOLONE ACETATE [Suspect]
     Active Substance: TRENBOLONE ACETATE
     Indication: PRODUCT USED FOR UNKNOWN INDICATION
     Dosage: UNK
  3. TESTOSTERONE. [Suspect]
     Active Substance: TESTOSTERONE
     Indication: PRODUCT USED FOR UNKNOWN INDICATION
  4. NANDROLONE DECANOATE. [Suspect]
     Active Substance: NANDROLONE DECANOATE
     Indication: PRODUCT USED FOR UNKNOWN INDICATION
     Dosage: UNK
  5. FINASTERIDE. [Suspect]
     Active Substance: FINASTERIDE
     Indication: PRODUCT USED FOR UNKNOWN INDICATION
     Dosage: UNK

REACTIONS (6)
  - Acne [Unknown]
  - Gynaecomastia [Unknown]
  - Drug abuse [Unknown]
  - Agitation [Unknown]
  - Erectile dysfunction [Unknown]
  - Libido decreased [Unknown]
